FAERS Safety Report 4849704-7 (Version None)
Quarter: 2005Q4

REPORT INFORMATION
  Report Type: 
  Country: None (occurrence: None)
  Receive Date: 20051207
  Receipt Date: 20051123
  Transmission Date: 20060501
  Serious: Yes (Disabling)
  Sender: FDA-Public Use
  Company Number: SP00510

PATIENT
  Age: 53 Year
  Sex: Male
  Weight: 69.84 kg

DRUGS (3)
  1. COLAZAL [Suspect]
     Indication: CROHN'S DISEASE
     Dosage: 1.5G/BID,
     Dates: start: 20050901, end: 20050901
  2. LOSARTAN [Concomitant]
  3. ESOMPRAZOLE [Concomitant]

REACTIONS (6)
  - ASTHMA [None]
  - CROHN'S DISEASE [None]
  - DYSPNOEA [None]
  - EAR PAIN [None]
  - MYALGIA [None]
  - WHEEZING [None]
